FAERS Safety Report 6006939-8 (Version None)
Quarter: 2008Q4

REPORT INFORMATION
  Report Type: 
  Country: None (occurrence: None)
  Receive Date: 20081217
  Receipt Date: 20071126
  Transmission Date: 20090506
  Serious: No
  Sender: FDA-Public Use
  Company Number: US-ASTRAZENECA-2007UW27089

PATIENT
  Age: 63 Year
  Sex: Female
  Weight: 59 kg

DRUGS (4)
  1. CRESTOR [Suspect]
     Route: 048
     Dates: start: 20070901, end: 20070101
  2. SOYBEAN OIL [Concomitant]
  3. LOVAZA [Concomitant]
  4. CALCIUM WITH VITAMIN C [Concomitant]

REACTIONS (1)
  - SKIN DISORDER [None]
